FAERS Safety Report 17112846 (Version 1)
Quarter: 2019Q4

REPORT INFORMATION
  Report Type: Spontaneous
  Country: FR (occurrence: FR)
  Receive Date: 20191204
  Receipt Date: 20191204
  Transmission Date: 20200122
  Serious: Yes (Other)
  Sender: FDA-Public Use
  Company Number: FR-MYLANLABS-2019M1118556

PATIENT
  Age: 79 Year
  Sex: Female

DRUGS (1)
  1. PACLITAXEL. [Suspect]
     Active Substance: PACLITAXEL
     Indication: BREAST CANCER
     Dosage: 80 MILLIGRAM/SQ. METER, QW
     Route: 042
     Dates: start: 201907

REACTIONS (4)
  - Cerebellar syndrome [Not Recovered/Not Resolved]
  - Vertigo [Not Recovered/Not Resolved]
  - Dysmetria [Not Recovered/Not Resolved]
  - Gait disturbance [Not Recovered/Not Resolved]

NARRATIVE: CASE EVENT DATE: 201909
